FAERS Safety Report 8822671 (Version 1)
Quarter: 2012Q4

REPORT INFORMATION
  Report Type: 
  Country: US (occurrence: US)
  Receive Date: 20121003
  Receipt Date: 20121003
  Transmission Date: 20130627
  Serious: No
  Sender: FDA-Public Use
  Company Number: US-TEVA-361643USA

PATIENT
  Sex: Male
  Weight: 89.89 kg

DRUGS (1)
  1. NUVIGIL [Suspect]

REACTIONS (3)
  - Nausea [Recovered/Resolved]
  - Personality change [Recovered/Resolved]
  - Abdominal discomfort [Recovered/Resolved]
